FAERS Safety Report 5369497-7 (Version None)
Quarter: 2007Q2

REPORT INFORMATION
  Report Type: 
  Country: None (occurrence: None)
  Receive Date: 20070625
  Receipt Date: 20070619
  Transmission Date: 20071010
  Serious: Yes (Other)
  Sender: FDA-Public Use
  Company Number: B0476420A

PATIENT
  Sex: Male

DRUGS (2)
  1. NIQUITIN CQ 2MG LOZENGE [Suspect]
     Indication: DRUG USE FOR UNKNOWN INDICATION
     Route: 002
  2. NIQUITIN CQ GUM 2MG [Concomitant]
     Route: 002

REACTIONS (1)
  - DEPENDENCE [None]
